FAERS Safety Report 8935285 (Version 1)
Quarter: 2012Q4

REPORT INFORMATION
  Report Type: 
  Country: US (occurrence: US)
  Receive Date: 20121129
  Receipt Date: 20121129
  Transmission Date: 20130627
  Serious: Yes (Hospitalization)
  Sender: FDA-Public Use
  Company Number: US-GLAXOSMITHKLINE-A0814574A

PATIENT
  Age: 31 Year
  Sex: Female

DRUGS (1)
  1. AVANDIA [Suspect]
     Indication: TYPE 2 DIABETES MELLITUS
     Route: 065
     Dates: start: 2000, end: 2007

REACTIONS (3)
  - Cardiac failure congestive [Recovered/Resolved]
  - Pain [Unknown]
  - Cardiovascular disorder [Unknown]
